FAERS Safety Report 15360485 (Version 2)
Quarter: 2019Q1

REPORT INFORMATION
  Report Type: Spontaneous
  Country: PL (occurrence: PL)
  Receive Date: 20180907
  Receipt Date: 20190215
  Transmission Date: 20190417
  Serious: Yes (Other)
  Sender: FDA-Public Use
  Company Number: PL-AUROBINDO-AUR-APL-2018-004308

PATIENT

DRUGS (39)
  1. ABILIFY [Suspect]
     Active Substance: ARIPIPRAZOLE
     Indication: SCHIZOPHRENIA
     Dosage: 7.5 MILLIGRAM, TWO TIMES A DAY
     Route: 065
  2. ABILIFY [Suspect]
     Active Substance: ARIPIPRAZOLE
     Dosage: 15 MG, QD (2X7.5 MG)
     Route: 065
     Dates: start: 20110311
  3. DIAZEPAM. [Concomitant]
     Active Substance: DIAZEPAM
     Indication: SCHIZOPHRENIA
  4. SERTRALINE [Suspect]
     Active Substance: SERTRALINE HYDROCHLORIDE
     Indication: SCHIZOPHRENIA
     Dosage: 100 MILLIGRAM, ONCE A DAY STARTED AT UNKNOWN DOSE WITH ARIPIPRAZOLE
     Route: 065
     Dates: start: 20150417
  5. SERTRALINE [Suspect]
     Active Substance: SERTRALINE HYDROCHLORIDE
     Indication: COMPULSIONS
     Dosage: 50 MILLIGRAM, ONCE A DAY
     Route: 065
     Dates: start: 20150602
  6. FLUOXETINE [Suspect]
     Active Substance: FLUOXETINE HYDROCHLORIDE
     Indication: SCHIZOPHRENIA
     Dosage: 60 MILLIGRAM, ONCE A DAY
     Route: 065
  7. VENLAFAXINE [Suspect]
     Active Substance: VENLAFAXINE HYDROCHLORIDE
     Indication: SCHIZOPHRENIA
  8. ABILIFY [Suspect]
     Active Substance: ARIPIPRAZOLE
     Dosage: 15 MILLIGRAM, TWO TIMES A DAY
     Route: 065
     Dates: start: 20150407
  9. RISPERIDONE. [Suspect]
     Active Substance: RISPERIDONE
     Indication: SCHIZOPHRENIA
  10. CLORAZEPATE [Suspect]
     Active Substance: CLORAZEPATE DIPOTASSIUM
     Indication: SCHIZOPHRENIA
     Dosage: 10 MILLIGRAM, ONCE A DAY
     Route: 065
  11. PERAZINE [Suspect]
     Active Substance: PERAZINE
     Indication: SCHIZOPHRENIA
  12. TIMONACIC [Suspect]
     Active Substance: TIMONACIC
     Indication: SCHIZOPHRENIA
     Dosage: UNK
     Route: 065
  13. VENLAFAXINE [Suspect]
     Active Substance: VENLAFAXINE HYDROCHLORIDE
     Indication: SCHIZOPHRENIA
     Dosage: UNK
     Route: 065
  14. ABILIFY [Suspect]
     Active Substance: ARIPIPRAZOLE
     Dosage: 15 MILLIGRAM, TWO TIMES A DAY
     Route: 065
     Dates: start: 20150407
  15. RISPERIDONE. [Suspect]
     Active Substance: RISPERIDONE
     Indication: SCHIZOPHRENIA
     Dosage: UNK
     Route: 065
  16. HALOPERIDOL. [Suspect]
     Active Substance: HALOPERIDOL
     Indication: SCHIZOPHRENIA
     Dosage: UNK
     Route: 065
  17. DIAZEPAM. [Concomitant]
     Active Substance: DIAZEPAM
     Indication: SCHIZOPHRENIA
     Dosage: UNK
     Route: 065
  18. OLANZAPINE. [Suspect]
     Active Substance: OLANZAPINE
     Indication: SCHIZOPHRENIA
     Dosage: UNK
     Route: 065
  19. OLANZAPINE. [Suspect]
     Active Substance: OLANZAPINE
     Indication: SCHIZOPHRENIA
  20. CLOMIPRAMINE [Suspect]
     Active Substance: CLOMIPRAMINE
     Indication: SCHIZOPHRENIA
  21. SERTRALINE [Suspect]
     Active Substance: SERTRALINE HYDROCHLORIDE
     Indication: SCHIZOPHRENIA
     Dosage: 50 MILLIGRAM, ONCE A DAY
     Route: 065
     Dates: start: 20110426
  22. SERTRALINE [Suspect]
     Active Substance: SERTRALINE HYDROCHLORIDE
     Indication: DEPRESSED MOOD
     Dosage: 100 MILLIGRAM, ONCE A DAY
     Route: 065
     Dates: start: 20150407
  23. FLUOXETINE [Suspect]
     Active Substance: FLUOXETINE HYDROCHLORIDE
     Indication: COMPULSIONS
  24. ABILIFY [Suspect]
     Active Substance: ARIPIPRAZOLE
     Dosage: 30 MILLIGRAM, ONCE A DAY
     Route: 065
     Dates: start: 20160212
  25. OXAZEPAM. [Suspect]
     Active Substance: OXAZEPAM
     Indication: SCHIZOPHRENIA
     Dosage: UNK
     Route: 065
  26. QUETIAPINE. [Suspect]
     Active Substance: QUETIAPINE
     Indication: SCHIZOPHRENIA
     Dosage: UNK
     Route: 065
  27. FLUOXETINE [Suspect]
     Active Substance: FLUOXETINE HYDROCHLORIDE
     Indication: SCHIZOPHRENIA
  28. CLOMIPRAMINE [Suspect]
     Active Substance: CLOMIPRAMINE
     Indication: SCHIZOPHRENIA
     Dosage: UNK
     Route: 016
  29. PERAZINE [Suspect]
     Active Substance: PERAZINE
     Indication: SCHIZOPHRENIA
     Dosage: 300 MILLIGRAM, ONCE A DAY
     Route: 065
  30. ABILIFY [Suspect]
     Active Substance: ARIPIPRAZOLE
     Dosage: 7.5 MILLIGRAM, TWO TIMES A DAY
     Route: 065
     Dates: start: 20110722
  31. ABILIFY [Suspect]
     Active Substance: ARIPIPRAZOLE
     Dosage: 7.5 MILLIGRAM
     Route: 065
     Dates: start: 20150602
  32. ABILIFY [Suspect]
     Active Substance: ARIPIPRAZOLE
     Dosage: 7.5 MILLIGRAM, ONCE A DAY
     Route: 065
     Dates: start: 20110722
  33. HALOPERIDOL. [Suspect]
     Active Substance: HALOPERIDOL
     Indication: SCHIZOPHRENIA
  34. QUETIAPINE. [Suspect]
     Active Substance: QUETIAPINE
     Indication: SCHIZOPHRENIA
  35. SERTRALINE [Suspect]
     Active Substance: SERTRALINE HYDROCHLORIDE
     Indication: OBSESSIVE THOUGHTS
  36. ABILIFY [Suspect]
     Active Substance: ARIPIPRAZOLE
     Indication: SCHIZOPHRENIA
     Dosage: 7.5 MILLIGRAM, ONCE A DAY
     Route: 065
  37. ABILIFY [Suspect]
     Active Substance: ARIPIPRAZOLE
     Dosage: 30 MILLIGRAM, ONCE A DAY
     Route: 065
  38. OXAZEPAM. [Suspect]
     Active Substance: OXAZEPAM
     Indication: SCHIZOPHRENIA
  39. TIMONACIC [Suspect]
     Active Substance: TIMONACIC
     Indication: SCHIZOPHRENIA

REACTIONS (9)
  - Maternal exposure during pregnancy [Recovered/Resolved]
  - Product use issue [Unknown]
  - Psychotic symptom [Recovered/Resolved]
  - Drug ineffective [Unknown]
  - Live birth [Unknown]
  - Suppressed lactation [Recovered/Resolved]
  - Anxiety [Unknown]
  - Inappropriate schedule of product administration [Unknown]
  - Prescribed underdose [Unknown]

NARRATIVE: CASE EVENT DATE: 20160125
